FAERS Safety Report 19113156 (Version 1)
Quarter: 2021Q2

REPORT INFORMATION
  Report Type: Spontaneous
  Country: US (occurrence: US)
  Receive Date: 20210408
  Receipt Date: 20210408
  Transmission Date: 20210717
  Serious: Yes (Other)
  Sender: FDA-Public Use
  Company Number: US-PFIZER INC-2021194797

PATIENT
  Age: 60 Year
  Sex: Female

DRUGS (1)
  1. METHOTREXATE SODIUM. [Suspect]
     Active Substance: METHOTREXATE SODIUM
     Dosage: UNK
     Dates: start: 2017

REACTIONS (7)
  - Drug hypersensitivity [Unknown]
  - Loss of consciousness [Unknown]
  - Renal failure [Unknown]
  - Illness [Unknown]
  - Arthritis [Unknown]
  - Dehydration [Unknown]
  - Condition aggravated [Unknown]
